FAERS Safety Report 21383404 (Version 1)
Quarter: 2022Q3

REPORT INFORMATION
  Report Type: Spontaneous
  Country: US (occurrence: US)
  Receive Date: 20220927
  Receipt Date: 20220927
  Transmission Date: 20221027
  Serious: No
  Sender: FDA-Public Use
  Company Number: US-MYLANLABS-2022M1088702

PATIENT
  Age: 68 Year
  Sex: Female
  Weight: 56.7 kg

DRUGS (3)
  1. ESTRADIOL [Suspect]
     Active Substance: ESTRADIOL
     Indication: Vulvovaginal dryness
     Dosage: 2 GRAM, QD (2G DAILY)
     Route: 067
     Dates: start: 20220806
  2. ESTRADIOL [Suspect]
     Active Substance: ESTRADIOL
     Indication: Atrophic vulvovaginitis
     Dosage: 2 GRAM, QW (2G TWICE A WEEK)
     Route: 067
     Dates: start: 20220806
  3. EFFEXOR [Concomitant]
     Active Substance: VENLAFAXINE HYDROCHLORIDE
     Indication: Anxiety
     Dosage: UNK
     Route: 065

REACTIONS (5)
  - Vulvovaginal discomfort [Not Recovered/Not Resolved]
  - Vulvovaginal burning sensation [Not Recovered/Not Resolved]
  - Product packaging quantity issue [Unknown]
  - Device calibration failure [Unknown]
  - Product quality issue [Unknown]

NARRATIVE: CASE EVENT DATE: 20220905
